FAERS Safety Report 13965124 (Version 1)
Quarter: 2017Q3

REPORT INFORMATION
  Report Type: Spontaneous
  Country: US (occurrence: US)
  Receive Date: 20170913
  Receipt Date: 20170913
  Transmission Date: 20171128
  Serious: No
  Sender: FDA-Public Use
  Company Number: US-TEVA-700357USA

PATIENT
  Sex: Female

DRUGS (1)
  1. CLOTRIMAZOLE. [Suspect]
     Active Substance: CLOTRIMAZOLE
     Route: 061

REACTIONS (4)
  - Seborrhoea [Unknown]
  - Dry skin [Unknown]
  - Hyperhidrosis [Unknown]
  - Hormone level abnormal [Unknown]
